FAERS Safety Report 25429058 (Version 5)
Quarter: 2025Q3

REPORT INFORMATION
  Report Type: Report from Study
  Country: CO (occurrence: CO)
  Receive Date: 20250612
  Receipt Date: 20250822
  Transmission Date: 20251021
  Serious: Yes (Death, Hospitalization)
  Sender: BIOGEN
  Company Number: CO-BIOGEN-2025BI01310150

PATIENT
  Age: 1 Year
  Sex: Male
  Weight: 12.8 kg

DRUGS (5)
  1. SPINRAZA [Suspect]
     Active Substance: NUSINERSEN
     Indication: Spinal muscular atrophy
     Dosage: LAST DOSE 04 JUL 2025
     Route: 050
     Dates: start: 20250502, end: 20250704
  2. FUROSEMIDE [Concomitant]
     Active Substance: FUROSEMIDE
     Indication: Product used for unknown indication
     Route: 050
     Dates: start: 20250526
  3. IPRATROPIUM BROMIDE [Concomitant]
     Active Substance: IPRATROPIUM BROMIDE
     Indication: Product used for unknown indication
     Dosage: 3 PUFF
     Route: 050
     Dates: start: 2025
  4. BECLOMETHASONE [Concomitant]
     Active Substance: BECLOMETHASONE
     Indication: Product used for unknown indication
     Dosage: 3 PUFF
     Route: 050
     Dates: start: 2025
  5. ALBUTEROL [Concomitant]
     Active Substance: ALBUTEROL
     Indication: Spinal muscular atrophy
     Route: 050
     Dates: start: 2025

REACTIONS (11)
  - Cardio-respiratory arrest [Fatal]
  - Adenovirus infection [Unknown]
  - Infection [Unknown]
  - Respiratory distress [Not Recovered/Not Resolved]
  - Dysphagia [Not Recovered/Not Resolved]
  - Tissue injury [Not Recovered/Not Resolved]
  - Hypoxia [Recovered/Resolved]
  - Oxygen saturation decreased [Recovered/Resolved]
  - Respiration abnormal [Unknown]
  - Pneumonia [Not Recovered/Not Resolved]
  - Influenza [Unknown]

NARRATIVE: CASE EVENT DATE: 20250501
